FAERS Safety Report 14884184 (Version 1)
Quarter: 2018Q2

REPORT INFORMATION
  Report Type: Spontaneous
  Country: US (occurrence: US)
  Receive Date: 20180511
  Receipt Date: 20180511
  Transmission Date: 20180711
  Serious: Yes (Death, Hospitalization)
  Sender: FDA-Public Use
  Company Number: US-MYLANLABS-2018M1031027

PATIENT

DRUGS (4)
  1. AMOXICILLIN. [Interacting]
     Active Substance: AMOXICILLIN
     Indication: INFECTION
     Route: 065
  2. LEFLUNOMIDE. [Interacting]
     Active Substance: LEFLUNOMIDE
     Indication: RHEUMATOID ARTHRITIS
     Route: 065
  3. METHOTREXATE. [Suspect]
     Active Substance: METHOTREXATE
     Indication: RHEUMATOID ARTHRITIS
     Dosage: THE PATIENT DOUBLED THE DOSE TO 20MG WITHOUT PRESCRIBER^S KNOWLEDGE.
     Route: 065
  4. METHOTREXATE. [Suspect]
     Active Substance: METHOTREXATE
     Route: 065

REACTIONS (4)
  - Drug interaction [Fatal]
  - Pancytopenia [Fatal]
  - Toxicity to various agents [Fatal]
  - Intentional product use issue [Fatal]
